FAERS Safety Report 9480821 (Version 1)
Quarter: 2013Q3

REPORT INFORMATION
  Report Type: Spontaneous
  Country: US (occurrence: US)
  Receive Date: 20130828
  Receipt Date: 20130828
  Transmission Date: 20140515
  Serious: Yes (Hospitalization)
  Sender: FDA-Public Use
  Company Number: US-AMGEN-KDL125927

PATIENT
  Age: 58 Year
  Sex: Female

DRUGS (2)
  1. ENBREL [Suspect]
     Indication: RHEUMATOID ARTHRITIS
     Dosage: 50 MG, QWK
     Route: 058
     Dates: start: 20040305
  2. METHOTREXATE [Concomitant]

REACTIONS (6)
  - Adverse drug reaction [Unknown]
  - Inflammation [Unknown]
  - Lung disorder [Unknown]
  - Dyspnoea [Unknown]
  - Blood potassium decreased [Unknown]
  - Dry eye [Unknown]
